FAERS Safety Report 6126210-3 (Version None)
Quarter: 2009Q1

REPORT INFORMATION
  Report Type: 
  Country: None (occurrence: None)
  Receive Date: 20090320
  Receipt Date: 20090317
  Transmission Date: 20090719
  Serious: Yes (Hospitalization)
  Sender: FDA-Public Use
  Company Number: B0565411A

PATIENT
  Age: 82 Year
  Sex: Female
  Weight: 50 kg

DRUGS (6)
  1. VALTREX [Suspect]
     Indication: HERPES ZOSTER
     Route: 048
     Dates: start: 20090306, end: 20090309
  2. LOXONIN [Concomitant]
     Route: 065
  3. METILDIGOXIN [Concomitant]
     Route: 048
  4. ASPIRIN [Concomitant]
     Route: 048
  5. MEVALOTIN [Concomitant]
     Route: 048
  6. ALLEGRA [Concomitant]
     Route: 048

REACTIONS (1)
  - MENTAL DISORDER [None]
